FAERS Safety Report 9102914 (Version 2)
Quarter: 2013Q2

REPORT INFORMATION
  Report Type: Spontaneous
  Country: US (occurrence: US)
  Receive Date: 20130219
  Receipt Date: 20130401
  Transmission Date: 20140414
  Serious: Yes (Death, Other)
  Sender: FDA-Public Use
  Company Number: US-PFIZER INC-2013060209

PATIENT
  Age: 74 Year
  Sex: 0

DRUGS (3)
  1. NEURONTIN [Suspect]
     Dosage: 300 MG, UNK
  2. LIPITOR [Suspect]
     Dosage: 40 MG, UNK
  3. EFFEXOR XR [Suspect]
     Dosage: 75 MG, UNK

REACTIONS (1)
  - Death [Fatal]
